FAERS Safety Report 4761426-X (Version None)
Quarter: 2005Q3

REPORT INFORMATION
  Report Type: 
  Country: None (occurrence: None)
  Receive Date: 20050901
  Receipt Date: 20050811
  Transmission Date: 20060218
  Serious: Yes (Death, Hospitalization)
  Sender: FDA-Public Use
  Company Number: 6016563

PATIENT
  Age: 79 Year
  Sex: Male

DRUGS (9)
  1. LEVOTHYROX 100 (100 MICROGRAM, TABLET) (LEVOTHYROXINE SODIUM) [Suspect]
     Dosage: 100 MCG (100 MCG, 1 IN 1 D) ORAL
     Route: 048
     Dates: end: 20050622
  2. CIFLOX (500 MG, TABLET) (CIPROFLOXACIN) [Suspect]
     Dosage: 1000 MG (500 MG, 2 IN 1 D) ORAL
     Route: 048
     Dates: start: 20050615, end: 20050620
  3. PREVISCAN (20 MG, TABLET) (FLUINDIONE) [Suspect]
     Dosage: 10 MG (10 MG, 1 D) ORAL
     Route: 048
     Dates: end: 20050622
  4. COVERSYL (4 MG, TABLET) (PERINDOPRIL) [Suspect]
     Dosage: ORAL
     Route: 048
     Dates: start: 20050614, end: 20050622
  5. HALDOL [Suspect]
     Dosage: 15 DOSAGE FORMS OF 2 MG/ML (15 DOSAGE FORMS, 1 D) ORAL
     Route: 048
     Dates: start: 20050610, end: 20050622
  6. MOPRAL (10 MG, CAPSULE) (OMEPRAZOLE) [Suspect]
     Dosage: ORAL
     Route: 048
     Dates: start: 20050610, end: 20050622
  7. CARDENSIEL (TABLET) (BISOPROLOL) [Concomitant]
  8. LORAZEPAM [Concomitant]
  9. LASILIX (TABLET) (FUROSEMIDE) [Concomitant]

REACTIONS (5)
  - CEREBRAL HAEMATOMA [None]
  - CONFUSIONAL STATE [None]
  - DRUG INTERACTION [None]
  - INTERNATIONAL NORMALISED RATIO INCREASED [None]
  - PROTHROMBIN TIME PROLONGED [None]
